FAERS Safety Report 6648937-7 (Version None)
Quarter: 2010Q1

REPORT INFORMATION
  Report Type: 
  Country: None (occurrence: None)
  Receive Date: 20100324
  Receipt Date: 20100318
  Transmission Date: 20100710
  Serious: Yes (Other)
  Sender: FDA-Public Use
  Company Number: US-ELI_LILLY_AND_COMPANY-US201003005083

PATIENT
  Sex: Male

DRUGS (4)
  1. HUMALOG [Suspect]
  2. LANTUS [Concomitant]
     Indication: TYPE 1 DIABETES MELLITUS
     Dosage: 22 U, DAILY (1/D)
     Route: 058
     Dates: start: 20020101
  3. APIDRA [Concomitant]
     Dosage: UNK, EACH EVENING
     Dates: start: 20091001
  4. KENALOG [Concomitant]
     Indication: TENDONITIS

REACTIONS (7)
  - BLOOD GLUCOSE DECREASED [None]
  - BLOOD GLUCOSE INCREASED [None]
  - DRUG INEFFECTIVE [None]
  - FALL [None]
  - HYPOGLYCAEMIC UNCONSCIOUSNESS [None]
  - INJURY [None]
  - TENDONITIS [None]
